FAERS Safety Report 6751041-0 (Version None)
Quarter: 2010Q2

REPORT INFORMATION
  Report Type: 
  Country: None (occurrence: None)
  Receive Date: 20100602
  Receipt Date: 20100525
  Transmission Date: 20101027
  Serious: Yes (Hospitalization, Other)
  Sender: FDA-Public Use
  Company Number: US-BAYER-201015977BCC

PATIENT
  Sex: Male

DRUGS (2)
  1. ALKA-SELTZER PLUS [Suspect]
     Indication: DRUG USE FOR UNKNOWN INDICATION
     Dosage: AS USED: 2 DF  UNIT DOSE: 1 DF
     Route: 065
  2. ANTI REJECTION MEDICATION [Concomitant]

REACTIONS (2)
  - HEART RATE IRREGULAR [None]
  - VENTRICULAR FIBRILLATION [None]
